FAERS Safety Report 13940806 (Version 1)
Quarter: 2017Q3

REPORT INFORMATION
  Report Type: Spontaneous
  Country: JP (occurrence: JP)
  Receive Date: 20170906
  Receipt Date: 20170906
  Transmission Date: 20171127
  Serious: Yes (Hospitalization)
  Sender: FDA-Public Use
  Company Number: JP-TEVA-2017-JP-002866J

PATIENT
  Age: 70 Year
  Sex: Male

DRUGS (7)
  1. ROHYPNOL [Concomitant]
     Active Substance: FLUNITRAZEPAM
     Indication: INSOMNIA
     Dosage: .5 MILLIGRAM DAILY;
     Route: 048
     Dates: end: 20170818
  2. TRIHEXYPHENIDYL HYDROCHLORIDE TABLET 2MG ^TAIYO^ [Suspect]
     Active Substance: TRIHEXYPHENIDYL HYDROCHLORIDE
     Indication: PARKINSON^S DISEASE
     Dosage: 2 MILLIGRAM DAILY;
     Route: 048
     Dates: start: 20170728, end: 20170818
  3. ABILIFY [Concomitant]
     Active Substance: ARIPIPRAZOLE
     Indication: DEPRESSION
     Route: 048
     Dates: end: 20170818
  4. YOKUKANSAN [Concomitant]
     Active Substance: HERBALS
     Indication: DEPRESSION
     Route: 048
     Dates: end: 20170818
  5. CYMBALTA [Concomitant]
     Active Substance: DULOXETINE HYDROCHLORIDE
     Indication: DEPRESSION
     Dosage: 50 MILLIGRAM DAILY;
     Route: 048
     Dates: end: 20170818
  6. RISPERDAL [Concomitant]
     Active Substance: RISPERIDONE
     Dosage: .5 MILLIGRAM DAILY;
     Route: 048
     Dates: start: 20170728, end: 20170818
  7. SENNOSIDE [Concomitant]
     Active Substance: SENNOSIDES
     Indication: CONSTIPATION
     Route: 048
     Dates: end: 20170818

REACTIONS (1)
  - Neuroleptic malignant syndrome [Recovering/Resolving]

NARRATIVE: CASE EVENT DATE: 20170818
